FAERS Safety Report 9859795 (Version 2)
Quarter: 2014Q2

REPORT INFORMATION
  Report Type: Spontaneous
  Country: US (occurrence: US)
  Receive Date: 20140131
  Receipt Date: 20140617
  Transmission Date: 20141212
  Serious: No
  Sender: FDA-Public Use
  Company Number: US-PFIZER INC-2014028154

PATIENT
  Age: 78 Year
  Sex: Female
  Weight: 68.03 kg

DRUGS (5)
  1. CELEBREX [Suspect]
     Indication: PAIN
     Dosage: UNK
  2. ATORVASTATIN CALCIUM [Suspect]
     Indication: BLOOD CHOLESTEROL
     Dosage: 80 MG, 1X/DAY
  3. LOPID [Suspect]
     Dosage: UNK
  4. FUROSEMIDE [Concomitant]
     Indication: HYPERTENSION
     Dosage: 40 MG, 1X/DAY
  5. AMLODIPINE [Concomitant]
     Indication: HYPERTENSION
     Dosage: 10 MG, 1X/DAY

REACTIONS (1)
  - Nephropathy [Unknown]
